FAERS Safety Report 12251096 (Version 1)
Quarter: 2016Q2

REPORT INFORMATION
  Report Type: Spontaneous
  Country: US (occurrence: US)
  Receive Date: 20160410
  Receipt Date: 20160410
  Transmission Date: 20160815
  Serious: No
  Sender: FDA-Public Use
  Company Number: US-JNJFOC-20160308270

PATIENT
  Age: 60 Year
  Sex: Male
  Weight: 95.26 kg

DRUGS (5)
  1. LISTERINE ORIGINAL [Suspect]
     Active Substance: EUCALYPTOL\MENTHOL\METHYL SALICYLATE\THYMOL
     Indication: DENTAL DISORDER PROPHYLAXIS
     Dosage: ~1/3 CAPFUL
     Route: 048
     Dates: end: 20160307
  2. LISTERINE TOTAL CARE STAIN REMOVER MOUTHWASH [Suspect]
     Active Substance: SODIUM FLUORIDE
     Indication: DENTAL DISORDER PROPHYLAXIS
     Dosage: ~1/3 CAPFUL, ~3 WEEKS
     Route: 065
  3. LISTERINE HEALTHYWHITE ANTICAVITY MOUTHRINSE VIBRANT - CLEAN MINT [Suspect]
     Active Substance: SODIUM FLUORIDE
     Indication: DENTAL DISORDER PROPHYLAXIS
     Dosage: ~1/3 CAPFUL, ~3 WEEKS
     Route: 065
  4. ZYRTEC [Suspect]
     Active Substance: CETIRIZINE HYDROCHLORIDE
     Route: 048
  5. ZYRTEC [Suspect]
     Active Substance: CETIRIZINE HYDROCHLORIDE
     Indication: MULTIPLE ALLERGIES
     Route: 048

REACTIONS (2)
  - Gingival pain [Not Recovered/Not Resolved]
  - Dry mouth [Not Recovered/Not Resolved]

NARRATIVE: CASE EVENT DATE: 201602
